FAERS Safety Report 4472110-4 (Version None)
Quarter: 2004Q4

REPORT INFORMATION
  Report Type: 
  Country: None (occurrence: None)
  Receive Date: 20041012
  Receipt Date: 20041006
  Transmission Date: 20050328
  Serious: Yes (Other)
  Sender: FDA-Public Use
  Company Number: US-MERCK-0410USA00843

PATIENT
  Age: 85 Year
  Sex: Female

DRUGS (5)
  1. FOSAMAX [Suspect]
     Indication: OSTEOPOROSIS
     Route: 048
     Dates: start: 20011001, end: 20040101
  2. FOSAMAX [Suspect]
     Route: 048
     Dates: start: 20040101
  3. CELEXA [Concomitant]
     Route: 065
  4. LANOXIN [Concomitant]
     Route: 065
  5. ADVAIR DISKUS 100/50 [Concomitant]
     Route: 065

REACTIONS (1)
  - RENAL FAILURE [None]
